FAERS Safety Report 7639276-6 (Version None)
Quarter: 2011Q3

REPORT INFORMATION
  Report Type: 
  Country: None (occurrence: None)
  Receive Date: 20110725
  Receipt Date: 20110725
  Transmission Date: 20111222
  Serious: Yes (Other)
  Sender: FDA-Public Use
  Company Number: None

PATIENT
  Sex: Male
  Weight: 30 kg

DRUGS (2)
  1. INTUNIV [Suspect]
     Indication: CEREBRAL PALSY
     Dosage: ONE QD PO
     Route: 048
  2. DEPAKOTE ER [Suspect]
     Indication: CONVULSION
     Dosage: ONE BID PO
     Route: 048
     Dates: start: 20110224

REACTIONS (4)
  - MOVEMENT DISORDER [None]
  - HEADACHE [None]
  - THERAPEUTIC RESPONSE UNEXPECTED WITH DRUG SUBSTITUTION [None]
  - CONVULSION [None]
